FAERS Safety Report 9925868 (Version 3)
Quarter: 2014Q2

REPORT INFORMATION
  Report Type: Spontaneous
  Country: FR (occurrence: FR)
  Receive Date: 20140226
  Receipt Date: 20140519
  Transmission Date: 20141212
  Serious: Yes (Hospitalization)
  Sender: FDA-Public Use
  Company Number: 2014SP000413

PATIENT
  Age: 17 Year
  Sex: Male
  Weight: 77 kg

DRUGS (3)
  1. ALVESCO INHALATION AEROSOL [Suspect]
     Indication: PRODUCT USED FOR UNKNOWN INDICATION
     Route: 055
     Dates: start: 20140122, end: 20140123
  2. SINGULAIR [Concomitant]
     Dates: start: 2005
  3. VENTOLINE /00139501/ [Concomitant]
     Dates: start: 2005

REACTIONS (2)
  - Laryngospasm [Recovered/Resolved]
  - Bronchospasm paradoxical [Recovered/Resolved]
